FAERS Safety Report 6609236-2 (Version None)
Quarter: 2010Q1

REPORT INFORMATION
  Report Type: 
  Country: None (occurrence: None)
  Receive Date: 20100301
  Receipt Date: 20100215
  Transmission Date: 20100710
  Serious: Yes (Disabling)
  Sender: FDA-Public Use
  Company Number: GB-MYLANLABS-2010S1002510

PATIENT
  Sex: Male
  Weight: 85 kg

DRUGS (1)
  1. TIZANIDINE HCL [Suspect]
     Indication: MUSCLE SPASTICITY
     Route: 048
     Dates: start: 20090914, end: 20091014

REACTIONS (2)
  - AGGRESSION [None]
  - MOOD SWINGS [None]
